FAERS Safety Report 16183728 (Version 4)
Quarter: 2019Q2

REPORT INFORMATION
  Report Type: Report from Study
  Country: US (occurrence: US)
  Receive Date: 20190411
  Receipt Date: 20190625
  Transmission Date: 20190711
  Serious: Yes (Other)
  Sender: FDA-Public Use
  Company Number: US-TESAROUBC-2019-TSO01516-US

PATIENT
  Age: 46 Year
  Sex: Female

DRUGS (4)
  1. ZEJULA [Suspect]
     Active Substance: NIRAPARIB
     Indication: OVARIAN CANCER
     Dosage: 300 MG, QD AT BEDTIME
     Route: 048
     Dates: start: 20190324
  2. ZEJULA [Suspect]
     Active Substance: NIRAPARIB
     Dosage: 200 MG DAILY IN THE EVENING WITH FOOD
  3. RUBRACA [Suspect]
     Active Substance: RUCAPARIB CAMSYLATE
     Indication: PRODUCT USED FOR UNKNOWN INDICATION
     Dosage: UNK
     Dates: end: 20190228
  4. WELLBUTRIN [Concomitant]
     Active Substance: BUPROPION HYDROCHLORIDE
     Indication: PRODUCT USED FOR UNKNOWN INDICATION

REACTIONS (17)
  - Decreased appetite [Not Recovered/Not Resolved]
  - Musculoskeletal pain [Unknown]
  - Feeling abnormal [Unknown]
  - Bone pain [Unknown]
  - Emotional disorder [Unknown]
  - Somnolence [Unknown]
  - Arthralgia [Unknown]
  - Neuropathy peripheral [Unknown]
  - Ligament sprain [Unknown]
  - Dehydration [Not Recovered/Not Resolved]
  - Blood sodium decreased [Unknown]
  - Blood glucose increased [Unknown]
  - Myalgia [Unknown]
  - Nausea [Not Recovered/Not Resolved]
  - Hyperhidrosis [Unknown]
  - Insomnia [Not Recovered/Not Resolved]
  - Platelet count decreased [Recovered/Resolved]

NARRATIVE: CASE EVENT DATE: 201905
